FAERS Safety Report 25316657 (Version 1)
Quarter: 2025Q2

REPORT INFORMATION
  Report Type: Spontaneous
  Country: US (occurrence: US)
  Receive Date: 20250515
  Receipt Date: 20250515
  Transmission Date: 20250717
  Serious: No
  Sender: ABBVIE
  Company Number: US-ABBVIE-6273527

PATIENT

DRUGS (2)
  1. RESTASIS [Suspect]
     Active Substance: CYCLOSPORINE
     Indication: Dry eye
     Route: 047
  2. NABUMETONE [Concomitant]
     Active Substance: NABUMETONE
     Indication: Arthritis

REACTIONS (1)
  - Hypoacusis [Unknown]
